FAERS Safety Report 24443665 (Version 2)
Quarter: 2024Q4

REPORT INFORMATION
  Report Type: Report from Study
  Country: US (occurrence: US)
  Receive Date: 20241016
  Receipt Date: 20241017
  Transmission Date: 20250114
  Serious: No
  Sender: ROCHE
  Company Number: US-ROCHE-1902651

PATIENT
  Age: 61 Year
  Sex: Male

DRUGS (6)
  1. RITUXAN [Suspect]
     Active Substance: RITUXIMAB
     Indication: Polymyositis
     Dosage: ON DAY 1 AND DAY 15 THEN EVERY 6 MONTHS?DATE OF TREATMENT:  24/OCT/2018,  25/APR/2018, 11/APR/2018,
     Route: 042
  2. RITUXAN [Suspect]
     Active Substance: RITUXIMAB
     Dosage: VIAL?ONGOING: YES
     Route: 042
     Dates: start: 20190918
  3. RITUXAN [Suspect]
     Active Substance: RITUXIMAB
     Dosage: VIAL?ONGOING: YES
     Route: 042
     Dates: start: 20200408
  4. RITUXAN [Suspect]
     Active Substance: RITUXIMAB
     Route: 042
     Dates: start: 201009
  5. RITUXAN [Suspect]
     Active Substance: RITUXIMAB
     Route: 042
  6. PREDNISONE [Concomitant]
     Active Substance: PREDNISONE

REACTIONS (4)
  - Off label use [Unknown]
  - Fatigue [Not Recovered/Not Resolved]
  - Scar [Not Recovered/Not Resolved]
  - Dyspnoea [Not Recovered/Not Resolved]

NARRATIVE: CASE EVENT DATE: 20110101
